FAERS Safety Report 4293948-2 (Version None)
Quarter: 2004Q1

REPORT INFORMATION
  Report Type: 
  Country: None (occurrence: None)
  Receive Date: 20040212
  Receipt Date: 20040212
  Transmission Date: 20041129
  Serious: Yes (Other)
  Sender: FDA-Public Use
  Company Number: None

PATIENT
  Age: 31 Year
  Sex: Male
  Weight: 103 kg

DRUGS (3)
  1. GEODON [Suspect]
     Indication: SCHIZOPHRENIA
     Dosage: 40 MG BID ORAL
     Route: 048
     Dates: start: 20040203, end: 20040204
  2. AMLODIPINE [Concomitant]
  3. DIVALPROEX SODIUM [Concomitant]

REACTIONS (1)
  - PRIAPISM [None]
